FAERS Safety Report 5759827-6 (Version None)
Quarter: 2008Q2

REPORT INFORMATION
  Report Type: 
  Country: None (occurrence: None)
  Receive Date: 20080605
  Receipt Date: 20080526
  Transmission Date: 20081010
  Serious: Yes (Other)
  Sender: FDA-Public Use
  Company Number: PHHY2008TW08968

PATIENT

DRUGS (2)
  1. SEBIVO [Suspect]
     Dosage: UNK
     Route: 048
     Dates: end: 20080525
  2. PROTON PUMP INHIBITORS [Suspect]

REACTIONS (2)
  - ANGIOEDEMA [None]
  - DRUG HYPERSENSITIVITY [None]
